FAERS Safety Report 8503486-6 (Version None)
Quarter: 2012Q3

REPORT INFORMATION
  Report Type: 
  Country: None (occurrence: None)
  Receive Date: 20120711
  Receipt Date: 20120424
  Transmission Date: 20120928
  Serious: Yes (Other)
  Sender: FDA-Public Use
  Company Number: JP-GLAXOSMITHKLINE-B0801225A

PATIENT
  Age: 63 Year
  Sex: Female

DRUGS (1)
  1. HYCAMTIN [Suspect]
     Indication: OVARIAN CANCER RECURRENT
     Dosage: 1.1MGM2 PER DAY
     Route: 042
     Dates: start: 20111116, end: 20111120

REACTIONS (8)
  - DECREASED APPETITE [None]
  - RED BLOOD CELL COUNT DECREASED [None]
  - WHITE BLOOD CELL COUNT DECREASED [None]
  - FATIGUE [None]
  - NEUTROPHIL COUNT DECREASED [None]
  - ANAEMIA [None]
  - NAUSEA [None]
  - BLOOD UREA INCREASED [None]
